FAERS Safety Report 20687763 (Version 1)
Quarter: 2022Q2

REPORT INFORMATION
  Report Type: Other
  Country: US (occurrence: None)
  Receive Date: 20220408
  Receipt Date: 20220408
  Transmission Date: 20220721
  Serious: Yes (Hospitalization, Other)
  Sender: FDA-Public Use
  Company Number: US-ROCHE-3064583

PATIENT
  Age: 46 Year
  Sex: Female
  Weight: 104.42 kg

DRUGS (4)
  1. OCREVUS [Suspect]
     Active Substance: OCRELIZUMAB
     Indication: Relapsing-remitting multiple sclerosis
     Dosage: 2019- 2020
     Route: 042
  2. LOVENOX [Concomitant]
     Active Substance: ENOXAPARIN SODIUM
  3. VITAMIN C [Concomitant]
     Active Substance: ASCORBIC ACID
  4. ZINC [Concomitant]
     Active Substance: ZINC

REACTIONS (3)
  - COVID-19 [Recovered/Resolved]
  - COVID-19 pneumonia [Recovered/Resolved]
  - Multiple sclerosis relapse [Recovered/Resolved]

NARRATIVE: CASE EVENT DATE: 20220111
